FAERS Safety Report 7530642-6 (Version None)
Quarter: 2011Q2

REPORT INFORMATION
  Report Type: 
  Country: None (occurrence: None)
  Receive Date: 20110607
  Receipt Date: 20091120
  Transmission Date: 20111010
  Serious: Yes (Death, Hospitalization)
  Sender: FDA-Public Use
  Company Number: JP-GENENTECH-290041

PATIENT
  Sex: Female
  Weight: 25 kg

DRUGS (16)
  1. CIPROFLOXACIN HCL [Concomitant]
     Indication: PRODUCT USED FOR UNKNOWN INDICATION
     Dosage: UNK
     Dates: start: 20090810
  2. VANCOMYCIN [Concomitant]
     Indication: PRODUCT USED FOR UNKNOWN INDICATION
     Dosage: UNK
     Dates: start: 20090820
  3. XOLAIR [Suspect]
     Indication: ASTHMA
  4. HOKUNALIN [Concomitant]
     Indication: PRODUCT USED FOR UNKNOWN INDICATION
     Dosage: UNK
     Dates: start: 20090803, end: 20090820
  5. MEPTIN [Concomitant]
     Indication: PRODUCT USED FOR UNKNOWN INDICATION
     Dosage: UNK
     Dates: start: 20090803, end: 20090820
  6. THEOPHYLLINE [Concomitant]
     Indication: PRODUCT USED FOR UNKNOWN INDICATION
     Dosage: UNK
     Dates: start: 20090803, end: 20090820
  7. INTAL [Concomitant]
     Indication: PRODUCT USED FOR UNKNOWN INDICATION
     Dosage: UNK
     Dates: start: 20090803, end: 20090820
  8. PREDNISOLONE [Concomitant]
     Indication: PRODUCT USED FOR UNKNOWN INDICATION
     Dosage: UNK
     Dates: start: 20090813, end: 20090820
  9. ZOSYN [Concomitant]
     Indication: PRODUCT USED FOR UNKNOWN INDICATION
  10. SOLU-CORTEF [Concomitant]
     Indication: PRODUCT USED FOR UNKNOWN INDICATION
     Dosage: UNK
     Dates: start: 20090803
  11. MEROPEN (JAPAN) [Concomitant]
     Indication: PRODUCT USED FOR UNKNOWN INDICATION
     Dosage: UNK
     Dates: start: 20090815
  12. XOLAIR [Suspect]
     Indication: STATUS ASTHMATICUS
     Dosage: 75 MG, SINGLE
     Route: 058
     Dates: start: 20090803, end: 20090803
  13. POLYGAM S/D [Concomitant]
     Indication: PRODUCT USED FOR UNKNOWN INDICATION
  14. SOLU-CORTEF [Concomitant]
     Dosage: UNK
     Dates: end: 20090812
  15. ISEPACIN [Concomitant]
     Indication: PRODUCT USED FOR UNKNOWN INDICATION
     Dosage: UNK
     Dates: start: 20090810
  16. GLOVENIN [Concomitant]
     Indication: PRODUCT USED FOR UNKNOWN INDICATION
     Dosage: UNK
     Dates: start: 20090810, end: 20090813

REACTIONS (2)
  - PNEUMONIA [None]
  - ASTHMA [None]
